FAERS Safety Report 14931584 (Version 2)
Quarter: 2018Q3

REPORT INFORMATION
  Report Type: Spontaneous
  Country: ES (occurrence: ES)
  Receive Date: 20180524
  Receipt Date: 20180713
  Transmission Date: 20181010
  Serious: Yes (Hospitalization, Other)
  Sender: FDA-Public Use
  Company Number: ES-TEVA-2018-ES-896822

PATIENT
  Age: 38 Year
  Sex: Female

DRUGS (3)
  1. HIDROALTESONA TABLETS, 10 TABLETS [Interacting]
     Active Substance: HYDROCORTISONE
     Indication: ADDISON^S DISEASE
     Dosage: 20 MILLIGRAM DAILY;
     Route: 048
     Dates: start: 2011
  2. DEXAMETASONA (722A) [Interacting]
     Active Substance: DEXAMETHASONE
     Indication: ADDISON^S DISEASE
     Dosage: .25 MILLIGRAM DAILY;
     Route: 048
     Dates: start: 2016, end: 20170907
  3. ESCITALOPRAM [Suspect]
     Active Substance: ESCITALOPRAM OXALATE
     Indication: DEPRESSION
     Dosage: 10 MILLIGRAM DAILY;
     Route: 048
     Dates: start: 20170405, end: 20170907

REACTIONS (2)
  - Drug interaction [Unknown]
  - Cushing^s syndrome [Recovering/Resolving]

NARRATIVE: CASE EVENT DATE: 20170907
